FAERS Safety Report 19593021 (Version 1)
Quarter: 2021Q3

REPORT INFORMATION
  Report Type: Spontaneous
  Country: US (occurrence: US)
  Receive Date: 20210722
  Receipt Date: 20210722
  Transmission Date: 20211014
  Serious: Yes (Other)
  Sender: FDA-Public Use
  Company Number: None

PATIENT
  Age: 61 Year
  Sex: Female
  Weight: 65.25 kg

DRUGS (6)
  1. DIPHENHYDRAMINE 25 PO [Concomitant]
     Dates: start: 20210721
  2. ACETAMINOPHEN 325 PO [Concomitant]
     Dates: start: 20210721
  3. GAMUNEX [Suspect]
     Active Substance: HUMAN IMMUNOGLOBULIN G
     Indication: CHRONIC INFLAMMATORY DEMYELINATING POLYRADICULONEUROPATHY
     Dosage: ?          OTHER FREQUENCY:WEEKLY;?
     Route: 042
     Dates: start: 20210721, end: 20210721
  4. KETOROLAC 30MG IV [Concomitant]
     Dates: start: 20210721
  5. GAMUNEX [Suspect]
     Active Substance: HUMAN IMMUNOGLOBULIN G
     Indication: CHRONIC INFLAMMATORY DEMYELINATING POLYRADICULONEUROPATHY
     Dosage: ?          OTHER FREQUENCY:WEEKLY;?
     Route: 042
     Dates: start: 20210721, end: 20210721
  6. 0.9 % NACL 1000ML IV [Concomitant]
     Dates: start: 20210721

REACTIONS (2)
  - Swollen tongue [None]
  - Tongue disorder [None]

NARRATIVE: CASE EVENT DATE: 20210721
